FAERS Safety Report 9169690 (Version 1)
Quarter: 2013Q1

REPORT INFORMATION
  Report Type: Report from Study
  Country: US (occurrence: US)
  Receive Date: 20130318
  Receipt Date: 20130318
  Transmission Date: 20140127
  Serious: Yes (Death)
  Sender: FDA-Public Use
  Company Number: US-PFIZER INC-2013086032

PATIENT
  Sex: 0

DRUGS (1)
  1. TOPOTECAN HYDROCHLORIDE [Suspect]
     Indication: SMALL CELL LUNG CANCER
     Dosage: 4 MG/M2, WEEKLY

REACTIONS (2)
  - Renal failure [Fatal]
  - Haematotoxicity [None]
